FAERS Safety Report 9277512 (Version 1)
Quarter: 2013Q2

REPORT INFORMATION
  Report Type: Spontaneous
  Country: US (occurrence: None)
  Receive Date: 20130503
  Receipt Date: 20130503
  Transmission Date: 20140414
  Serious: No
  Sender: FDA-Public Use
  Company Number: None

PATIENT
  Age: 60 Year
  Sex: Female
  Weight: 99.79 kg

DRUGS (1)
  1. LEVOTHYROXINE [Suspect]
     Route: 048
     Dates: start: 20130326, end: 20130414

REACTIONS (4)
  - Headache [None]
  - Hot flush [None]
  - Glossitis [None]
  - Tongue disorder [None]
